FAERS Safety Report 10550404 (Version 1)
Quarter: 2014Q4

REPORT INFORMATION
  Report Type: Spontaneous
  Country: US (occurrence: US)
  Receive Date: 20141029
  Receipt Date: 20141029
  Transmission Date: 20150529
  Serious: No
  Sender: FDA-Public Use
  Company Number: US-TEVA-443611USA

PATIENT
  Age: 64 Year
  Sex: Female

DRUGS (16)
  1. ENBREL [Concomitant]
     Active Substance: ETANERCEPT
  2. CLONAZEPAM. [Concomitant]
     Active Substance: CLONAZEPAM
  3. VERAPAMIL ER [Concomitant]
     Active Substance: VERAPAMIL HYDROCHLORIDE
  4. BRIAMONIDINE [Concomitant]
  5. PROVIGIL [Suspect]
     Active Substance: MODAFINIL
  6. PRAVACHOL [Concomitant]
     Active Substance: PRAVASTATIN SODIUM
  7. XALATAN [Concomitant]
     Active Substance: LATANOPROST
  8. MELOXICAM. [Concomitant]
     Active Substance: MELOXICAM
  9. TRAMADOL [Concomitant]
     Active Substance: TRAMADOL
  10. METHOTREXATE [Concomitant]
     Active Substance: METHOTREXATE
  11. ABILIFY [Concomitant]
     Active Substance: ARIPIPRAZOLE
  12. ACTONEL [Concomitant]
     Active Substance: RISEDRONATE SODIUM
  13. ESTRADIOL. [Concomitant]
     Active Substance: ESTRADIOL
  14. LITHIUM ER [Concomitant]
  15. OMEPRAZOLE. [Concomitant]
     Active Substance: OMEPRAZOLE
  16. AZOPT [Concomitant]
     Active Substance: BRINZOLAMIDE

REACTIONS (1)
  - Drug effect decreased [Unknown]
